FAERS Safety Report 17270989 (Version 1)
Quarter: 2020Q1

REPORT INFORMATION
  Report Type: Spontaneous
  Country: US (occurrence: US)
  Receive Date: 20200115
  Receipt Date: 20200115
  Transmission Date: 20200409
  Serious: Yes (Other)
  Sender: FDA-Public Use
  Company Number: US-ASTRAZENECA-2020SE04508

PATIENT
  Age: 73 Year
  Sex: Male

DRUGS (2)
  1. PREDNISONE. [Concomitant]
     Active Substance: PREDNISONE
  2. FASENRA [Suspect]
     Active Substance: BENRALIZUMAB
     Indication: ASTHMA
     Dosage: EVERY FOUR WEEKS
     Route: 058

REACTIONS (8)
  - Asthma [Recovering/Resolving]
  - White blood cell count increased [Recovered/Resolved]
  - Joint swelling [Not Recovered/Not Resolved]
  - Fall [Unknown]
  - Muscular weakness [Not Recovered/Not Resolved]
  - Dyspnoea [Recovering/Resolving]
  - Facial bones fracture [Unknown]
  - Chronic obstructive pulmonary disease [Unknown]
